FAERS Safety Report 4797363-4 (Version None)
Quarter: 2005Q4

REPORT INFORMATION
  Report Type: 
  Country: None (occurrence: None)
  Receive Date: 20051013
  Receipt Date: 20051003
  Transmission Date: 20060501
  Serious: Yes (Life-Threatening, Hospitalization)
  Sender: FDA-Public Use
  Company Number: CH-JNJFOC-20050902201

PATIENT
  Age: 37 Year
  Sex: Male

DRUGS (9)
  1. CONCERTA [Suspect]
     Indication: EMOTIONAL DISORDER
     Route: 048
  2. CONCERTA [Suspect]
     Route: 048
  3. RITALIN [Suspect]
     Indication: EMOTIONAL DISORDER
     Route: 048
  4. RITALIN [Suspect]
     Route: 048
  5. METHADON STREULI [Suspect]
     Route: 048
  6. METHADON STREULI [Suspect]
     Indication: MENTAL DISORDER
     Route: 048
  7. MARCOUMAR [Concomitant]
     Route: 048
  8. MARCOUMAR [Concomitant]
     Indication: PULMONARY EMBOLISM
     Route: 048
  9. REMERON [Concomitant]
     Route: 048

REACTIONS (3)
  - SYNCOPE [None]
  - TORSADE DE POINTES [None]
  - VENTRICULAR EXTRASYSTOLES [None]
